FAERS Safety Report 10543437 (Version 1)
Quarter: 2014Q4

REPORT INFORMATION
  Report Type: Spontaneous
  Country: US (occurrence: None)
  Receive Date: 20141010
  Receipt Date: 20141010
  Transmission Date: 20150529
  Serious: No
  Sender: FDA-Public Use
  Company Number: 163-POMAL-14071139

PATIENT
  Age: 58 Year
  Sex: Female
  Weight: 81.6 kg

DRUGS (10)
  1. IMODIUM [Concomitant]
     Active Substance: LOPERAMIDE HYDROCHLORIDE
  2. MUCINEX (GUAIFENESIN) [Concomitant]
  3. MAXALT (RIZATRIPTAN BENZOATE) [Concomitant]
     Active Substance: RIZATRIPTAN BENZOATE
  4. POMALYST [Suspect]
     Active Substance: POMALIDOMIDE
     Indication: PLASMA CELL MYELOMA
     Dosage: 2 MG, 21 IN 28 D, PO
     Route: 048
     Dates: start: 20131001
  5. ADVIL [Concomitant]
     Active Substance: IBUPROFEN
  6. MAGNESIUM (MAGNESIUM) [Concomitant]
     Active Substance: MAGNESIUM
  7. VELCADE [Concomitant]
     Active Substance: BORTEZOMIB
  8. DEXAMETHASONE (DEXAMETHSONE) [Concomitant]
  9. ALEVE (NAPROXEN SODIUM) [Concomitant]
  10. CALCIUM CARBONATE (CALCIUM CARBONATE) [Concomitant]

REACTIONS (1)
  - Lymphoedema [None]
